FAERS Safety Report 8428302-2 (Version None)
Quarter: 2012Q2

REPORT INFORMATION
  Report Type: 
  Country: None (occurrence: None)
  Receive Date: 20120611
  Receipt Date: 20120607
  Transmission Date: 20120825
  Serious: Yes (Hospitalization, Disabling, Other)
  Sender: FDA-Public Use
  Company Number: US-MERCK-1203USA03364

PATIENT
  Age: 78 Year
  Sex: Female

DRUGS (3)
  1. FOSAMAX [Suspect]
     Route: 048
  2. FOSAMAX [Suspect]
     Indication: OSTEOPOROSIS PROPHYLAXIS
     Route: 048
     Dates: start: 20020201, end: 20101104
  3. FOSAMAX [Suspect]
     Indication: OSTEOPENIA
     Route: 048
     Dates: start: 20020201, end: 20101104

REACTIONS (50)
  - FALL [None]
  - DYSTROPHIC CALCIFICATION [None]
  - DILATATION ATRIAL [None]
  - DIASTOLIC DYSFUNCTION [None]
  - VIRAL UPPER RESPIRATORY TRACT INFECTION [None]
  - LOOSE TOOTH [None]
  - CORONARY ARTERY DISEASE [None]
  - ARTHROPATHY [None]
  - SYNCOPE [None]
  - PAIN IN EXTREMITY [None]
  - HYPOTHYROIDISM [None]
  - VASCULAR CALCIFICATION [None]
  - BLOOD THYROID STIMULATING HORMONE INCREASED [None]
  - DEMENTIA [None]
  - CATARACT [None]
  - TOOTH DISORDER [None]
  - TONSILLAR DISORDER [None]
  - NORMOCHROMIC NORMOCYTIC ANAEMIA [None]
  - MUSCULAR WEAKNESS [None]
  - ANKLE FRACTURE [None]
  - STRESS FRACTURE [None]
  - SPEECH DISORDER [None]
  - LOW TURNOVER OSTEOPATHY [None]
  - COUGH [None]
  - MYALGIA [None]
  - CARDIAC MURMUR [None]
  - ORTHOSTATIC HYPOTENSION [None]
  - ANAEMIA POSTOPERATIVE [None]
  - ATRIAL FIBRILLATION [None]
  - HYPERTENSION [None]
  - URINARY TRACT INFECTION [None]
  - HYPOTENSION [None]
  - VERTIGO POSITIONAL [None]
  - OSTEOPOROSIS [None]
  - PERIPHERAL COLDNESS [None]
  - PYREXIA [None]
  - VASCULAR SHUNT [None]
  - MITRAL VALVE INCOMPETENCE [None]
  - INCISION SITE COMPLICATION [None]
  - ADENOIDAL DISORDER [None]
  - HYPERLIPIDAEMIA [None]
  - AMNESIA [None]
  - AGITATION [None]
  - FEMUR FRACTURE [None]
  - RENAL FAILURE CHRONIC [None]
  - AORTIC ARTERIOSCLEROSIS [None]
  - INTERVERTEBRAL DISC DEGENERATION [None]
  - DEVICE DEPLOYMENT ISSUE [None]
  - CEREBRAL SMALL VESSEL ISCHAEMIC DISEASE [None]
  - BACK PAIN [None]
